FAERS Safety Report 13809678 (Version 1)
Quarter: 2017Q3

REPORT INFORMATION
  Report Type: Spontaneous
  Country: DE (occurrence: DE)
  Receive Date: 20170728
  Receipt Date: 20170728
  Transmission Date: 20171127
  Serious: Yes (Death, Life-Threatening)
  Sender: FDA-Public Use
  Company Number: DE-ELI_LILLY_AND_COMPANY-DE201707009763

PATIENT
  Age: 8 Year
  Sex: Male

DRUGS (2)
  1. L-THYROXIN ARISTO [Concomitant]
     Indication: HYPOTHYROIDISM
     Dosage: UNK, UNKNOWN
     Route: 048
  2. STRATTERA [Suspect]
     Active Substance: ATOMOXETINE HYDROCHLORIDE
     Indication: ATTENTION DEFICIT/HYPERACTIVITY DISORDER
     Dosage: 18 MG, DAILY
     Route: 048
     Dates: start: 20170613

REACTIONS (2)
  - Seizure [Fatal]
  - Brain oedema [Fatal]

NARRATIVE: CASE EVENT DATE: 20170706
